FAERS Safety Report 8341059-9 (Version None)
Quarter: 2012Q2

REPORT INFORMATION
  Report Type: 
  Country: None (occurrence: None)
  Receive Date: 20120507
  Receipt Date: 20120430
  Transmission Date: 20120825
  Serious: Yes (Hospitalization, Congenital Anomaly)
  Sender: FDA-Public Use
  Company Number: US-GLAXOSMITHKLINE-A0847390A

PATIENT
  Sex: Male

DRUGS (12)
  1. MULTI-VITAMINS [Concomitant]
     Route: 064
  2. ALBUTEROL [Concomitant]
     Route: 064
  3. PREVACID [Concomitant]
  4. PAXIL [Suspect]
     Indication: PRODUCT USED FOR UNKNOWN INDICATION
     Dosage: 20MG PER DAY
     Route: 064
  5. ADVAIR DISKUS 100/50 [Concomitant]
  6. IMITREX [Concomitant]
  7. RISPERDAL [Concomitant]
  8. TYLENOL (CAPLET) [Concomitant]
  9. ULTRAM [Concomitant]
  10. SKELAXIN [Concomitant]
  11. AMOXICILLIN [Concomitant]
     Dates: start: 20030326
  12. PAXIL CR [Suspect]
     Indication: PRODUCT USED FOR UNKNOWN INDICATION
     Dosage: 25MG UNKNOWN
     Route: 064
     Dates: start: 20021111, end: 20031007

REACTIONS (7)
  - TRISOMY 21 [None]
  - FOETAL EXPOSURE DURING PREGNANCY [None]
  - HYPOPLASTIC LEFT HEART SYNDROME [None]
  - CARDIAC DISORDER [None]
  - PATENT DUCTUS ARTERIOSUS [None]
  - VENTRICULAR SEPTAL DEFECT [None]
  - ATRIAL SEPTAL DEFECT [None]
